FAERS Safety Report 9587836 (Version 2)
Quarter: 2013Q4

REPORT INFORMATION
  Report Type: Spontaneous
  Country: US (occurrence: US)
  Receive Date: 20131003
  Receipt Date: 20131011
  Transmission Date: 20140711
  Serious: Yes (Other)
  Sender: FDA-Public Use
  Company Number: CHPA2013US014840

PATIENT
  Age: 68 Year
  Sex: Female

DRUGS (3)
  1. EXCEDRIN EXTRA STRENGTH [Suspect]
     Indication: HEADACHE
     Dosage: 2 DF, PRN
     Route: 048
  2. EXCEDRIN EXTRA STRENGTH [Suspect]
     Indication: OFF LABEL USE
  3. VERAPAMIL [Suspect]
     Indication: MIGRAINE
     Dosage: 1 UNK, UNK
     Route: 065

REACTIONS (11)
  - Breast cancer [Not Recovered/Not Resolved]
  - Spinal disorder [Unknown]
  - Cataract [Recovering/Resolving]
  - Urinary tract infection [Recovered/Resolved]
  - Visual acuity reduced [Unknown]
  - Influenza [Recovered/Resolved]
  - Blood pressure fluctuation [Recovered/Resolved]
  - Presyncope [Recovered/Resolved]
  - Headache [Not Recovered/Not Resolved]
  - Blood pressure decreased [Recovered/Resolved]
  - Therapeutic response unexpected [Unknown]
